FAERS Safety Report 4996385-8 (Version None)
Quarter: 2006Q2

REPORT INFORMATION
  Report Type: 
  Country: None (occurrence: None)
  Receive Date: 20060509
  Receipt Date: 20060425
  Transmission Date: 20061013
  Serious: Yes (Life-Threatening)
  Sender: FDA-Public Use
  Company Number: JP-JNJFOC-20060403134

PATIENT
  Sex: Female

DRUGS (12)
  1. RISPERDAL [Suspect]
     Indication: SCHIZOPHRENIA
     Route: 048
  2. SENNOSIDE [Concomitant]
     Route: 048
  3. SODIUM PICOSULFATE [Concomitant]
     Indication: CONSTIPATION
     Route: 048
  4. GLIBENCLAMIDE [Concomitant]
     Indication: DIABETES MELLITUS
     Route: 048
  5. PIOGLITAZONE HCL [Concomitant]
     Indication: DIABETES MELLITUS
     Route: 048
  6. MECOBALAMIN [Concomitant]
     Route: 048
  7. LOXOPROFEN SODIUM [Concomitant]
     Route: 048
  8. EPERISONE HYDROCHLORIDE [Concomitant]
     Route: 048
  9. REBAMIPIDE [Concomitant]
     Route: 048
  10. KALLIDINOGENASE [Concomitant]
     Route: 048
  11. CARBAZOCHROME SODIUM SULFONATE [Concomitant]
     Route: 048
  12. IODOLECITHINE [Concomitant]
     Route: 048

REACTIONS (7)
  - DIABETIC KETOACIDOSIS [None]
  - MALAISE [None]
  - PERSECUTORY DELUSION [None]
  - PNEUMONIA [None]
  - PYREXIA [None]
  - RENAL FAILURE [None]
  - URINARY TRACT INFECTION [None]
